FAERS Safety Report 8449973-0 (Version None)
Quarter: 2012Q2

REPORT INFORMATION
  Report Type: 
  Country: None (occurrence: None)
  Receive Date: 20120620
  Receipt Date: 20120618
  Transmission Date: 20120825
  Serious: Yes (Death)
  Sender: FDA-Public Use
  Company Number: PHHY2012AT049847

PATIENT
  Age: 81 Year
  Sex: Female
  Weight: 75 kg

DRUGS (1)
  1. SPA100A [Suspect]
     Dosage: 1 DF, (150/10 MG)
     Dates: start: 20120109

REACTIONS (2)
  - DEATH [None]
  - HEART RATE DECREASED [None]
